FAERS Safety Report 4267238-8 (Version None)
Quarter: 2004Q1

REPORT INFORMATION
  Report Type: 
  Country: None (occurrence: None)
  Receive Date: 20040107
  Receipt Date: 20031222
  Transmission Date: 20041129
  Serious: Yes (Hospitalization)
  Sender: FDA-Public Use
  Company Number: US061674

PATIENT
  Age: 71 Year
  Sex: Male
  Weight: 59 kg

DRUGS (4)
  1. ARANESP [Suspect]
     Indication: ANAEMIA
     Dosage: 200 MCG, SC
     Route: 058
     Dates: start: 20030722, end: 20030812
  2. HYDROXYCARBAMIDE [Concomitant]
  3. ANAGRELIDE HYDROCHLORIDE [Concomitant]
  4. VICODIN [Concomitant]

REACTIONS (4)
  - CONVULSION [None]
  - HAEMOGLOBIN DECREASED [None]
  - NUCLEAR MAGNETIC RESONANCE IMAGING BRAIN ABNORMAL [None]
  - STATUS EPILEPTICUS [None]
